FAERS Safety Report 10057996 (Version 2)
Quarter: 2014Q2

REPORT INFORMATION
  Report Type: Spontaneous
  Country: CA (occurrence: CA)
  Receive Date: 20140404
  Receipt Date: 20140404
  Transmission Date: 20141212
  Serious: Yes (Hospitalization)
  Sender: FDA-Public Use
  Company Number: CA-BEH-2013036635

PATIENT
  Age: 6 Year
  Sex: Female
  Weight: 21 kg

DRUGS (2)
  1. PRIVIGEN [Suspect]
     Indication: KAWASAKI^S DISEASE
     Dosage: 50.4 ML/HR
     Route: 042
     Dates: start: 20130524, end: 20130524
  2. PRIVIGEN [Suspect]
     Dosage: 50.4 ML/HR
     Route: 042
     Dates: start: 20130524, end: 20130524

REACTIONS (3)
  - Syncope [Unknown]
  - Haemolysis [Recovered/Resolved]
  - Pyrexia [Unknown]
